FAERS Safety Report 7498368-5 (Version None)
Quarter: 2011Q2

REPORT INFORMATION
  Report Type: 
  Country: None (occurrence: None)
  Receive Date: 20110524
  Receipt Date: 20101229
  Transmission Date: 20111010
  Serious: Yes (Hospitalization, Other)
  Sender: FDA-Public Use
  Company Number: US-BAYER-201023398NA

PATIENT
  Age: 25 Year
  Sex: Female
  Weight: 74.83 kg

DRUGS (2)
  1. YAZ [Suspect]
     Indication: CONTRACEPTION
     Dosage: UNK
     Route: 048
     Dates: start: 20071001, end: 20090501
  2. YASMIN [Suspect]
     Indication: PRODUCT USED FOR UNKNOWN INDICATION
     Route: 048
     Dates: start: 20080501, end: 20081101

REACTIONS (10)
  - CHOLECYSTITIS CHRONIC [None]
  - NAUSEA [None]
  - ANXIETY [None]
  - CHEST PAIN [None]
  - GASTROOESOPHAGEAL REFLUX DISEASE [None]
  - CHOLELITHIASIS [None]
  - QUALITY OF LIFE DECREASED [None]
  - VOMITING [None]
  - PROCEDURAL PAIN [None]
  - GALLBLADDER DISORDER [None]
